FAERS Safety Report 21440894 (Version 6)
Quarter: 2023Q1

REPORT INFORMATION
  Report Type: Report from Study
  Country: US (occurrence: US)
  Receive Date: 20221011
  Receipt Date: 20230127
  Transmission Date: 20230417
  Serious: No
  Sender: FDA-Public Use
  Company Number: US-NOVARTISTESTPH-NVSC2022US229477

PATIENT
  Sex: Male

DRUGS (1)
  1. TASIGNA [Suspect]
     Active Substance: NILOTINIB
     Indication: Product used for unknown indication
     Dosage: UNK
     Route: 065

REACTIONS (14)
  - Rhinorrhoea [Unknown]
  - Somnolence [Unknown]
  - Headache [Recovered/Resolved]
  - Dry skin [Unknown]
  - Pruritus [Unknown]
  - Peripheral swelling [Unknown]
  - Depression [Unknown]
  - Acne [Unknown]
  - Constipation [Unknown]
  - Alopecia [Unknown]
  - Eye infection viral [Recovering/Resolving]
  - Ocular hyperaemia [Recovering/Resolving]
  - Fatigue [Unknown]
  - Product distribution issue [Unknown]
